FAERS Safety Report 12963353 (Version 1)
Quarter: 2016Q4

REPORT INFORMATION
  Report Type: Spontaneous
  Country: US (occurrence: US)
  Receive Date: 20161122
  Receipt Date: 20161122
  Transmission Date: 20170207
  Serious: Yes (Disabling, Other)
  Sender: FDA-Public Use
  Company Number: US-SUN PHARMACEUTICAL INDUSTRIES LTD-2016US-127148

PATIENT

DRUGS (4)
  1. ETOPOSIDE. [Suspect]
     Active Substance: ETOPOSIDE
     Indication: METASTATIC CHORIOCARCINOMA
     Dosage: 3 MG/KG, DAILY
  2. CISPLATIN. [Suspect]
     Active Substance: CISPLATIN
     Indication: METASTATIC CHORIOCARCINOMA
     Dosage: 0.7 MG/KG, DAILY
     Route: 065
  3. DEXAMETHASONE. [Suspect]
     Active Substance: DEXAMETHASONE
     Indication: ANTIEMETIC SUPPORTIVE CARE
     Dosage: UNK
     Route: 065
  4. BLEOMYCIN [Suspect]
     Active Substance: BLEOMYCIN SULFATE
     Indication: METASTATIC CHORIOCARCINOMA
     Dosage: 5 UNITS/KG, 2 UNITS, SINGLE DOSE
     Route: 065

REACTIONS (5)
  - Hepatic haemorrhage [Recovering/Resolving]
  - Hypoglycaemia [Recovered/Resolved]
  - Hepatomegaly [Recovering/Resolving]
  - Deafness neurosensory [Not Recovered/Not Resolved]
  - Adrenal insufficiency [Recovered/Resolved]
